FAERS Safety Report 19264668 (Version 2)
Quarter: 2021Q2

REPORT INFORMATION
  Report Type: Report from Study
  Country: MX (occurrence: MX)
  Receive Date: 20210517
  Receipt Date: 20210627
  Transmission Date: 20210717
  Serious: Yes (Other)
  Sender: FDA-Public Use
  Company Number: NVSC2021MX108476

PATIENT
  Sex: Male
  Weight: 94 kg

DRUGS (1)
  1. GALVUS MET [Suspect]
     Active Substance: METFORMIN HYDROCHLORIDE\VILDAGLIPTIN
     Indication: DIABETES MELLITUS
     Dosage: 1 DF, BID  (850 MG METF AND 50 MG VILD)
     Route: 048
     Dates: start: 20201227

REACTIONS (1)
  - Diabetic retinopathy [Recovered/Resolved]

NARRATIVE: CASE EVENT DATE: 20210429
